FAERS Safety Report 18626590 (Version 2)
Quarter: 2020Q4

REPORT INFORMATION
  Report Type: Spontaneous
  Country: US (occurrence: US)
  Receive Date: 20201217
  Receipt Date: 20201223
  Transmission Date: 20210114
  Serious: Yes (Other)
  Sender: FDA-Public Use
  Company Number: US-GW PHARMA-202012USGW04355

PATIENT

DRUGS (2)
  1. EPIDIOLEX [Suspect]
     Active Substance: CANNABIDIOL
     Indication: EPILEPSY
     Dosage: 675 MILLIGRAM, BID
     Route: 048
     Dates: start: 2018
  2. EPIDIOLEX [Suspect]
     Active Substance: CANNABIDIOL
     Dosage: 450 MILLIGRAM, TID (06:00, 13:00, 21:00)
     Route: 048

REACTIONS (4)
  - Off label use [Unknown]
  - Road traffic accident [Unknown]
  - Sinus node dysfunction [Unknown]
  - Migraine with aura [Unknown]

NARRATIVE: CASE EVENT DATE: 202002
